FAERS Safety Report 7105752-8 (Version None)
Quarter: 2010Q4

REPORT INFORMATION
  Report Type: 
  Country: None (occurrence: None)
  Receive Date: 20101116
  Receipt Date: 20101104
  Transmission Date: 20110411
  Serious: Yes (Hospitalization, Congenital Anomaly)
  Sender: FDA-Public Use
  Company Number: DK-JNJFOC-20101102243

PATIENT
  Sex: Male
  Weight: 3 kg

DRUGS (1)
  1. INFLIXIMAB [Suspect]
     Indication: DRUG EXPOSURE DURING PREGNANCY
     Route: 064

REACTIONS (7)
  - BACTERIAL SEPSIS [None]
  - CONGENITAL MUSCULOSKELETAL ANOMALY [None]
  - DIARRHOEA [None]
  - NEONATAL ASPHYXIA [None]
  - OTITIS MEDIA ACUTE [None]
  - PREMATURE BABY [None]
  - RESPIRATORY SYNCYTIAL VIRUS BRONCHIOLITIS [None]
